FAERS Safety Report 8170045-7 (Version None)
Quarter: 2012Q1

REPORT INFORMATION
  Report Type: 
  Country: None (occurrence: None)
  Receive Date: 20120104
  Receipt Date: 20111122
  Transmission Date: 20120608
  Serious: No
  Sender: FDA-Public Use
  Company Number: 2011HGS-002854

PATIENT
  Age: 47 Year
  Sex: Female
  Weight: 58.9676 kg

DRUGS (11)
  1. BACTRIM (BACTRIM) (SULFAMETHOXAZOLE TRIMETHOPRIM) [Concomitant]
  2. BENLYSTA [Suspect]
     Indication: SYSTEMIC LUPUS ERYTHEMATOSUS
     Dosage: 1 IN 28 D, INTRAVENOUS DRIP
     Route: 041
     Dates: start: 20110907
  3. CYCLOBENZAPRINE HCL [Concomitant]
  4. ABILIFY (ARIPIPRAZOLE) (ARIPIPRAZOLE) [Concomitant]
  5. MICOPHENOLATE (MYCOPHENOLATE MOFETIL) (MYCOPHENOLATE MOFEITL) [Concomitant]
  6. HYDROXYCHLOROQUINE (HYDROXYCHLOROQUINE) (HYDROCHLOROQUINE) [Concomitant]
  7. HYDROCHLOROTHIAZIDE [Concomitant]
  8. AMLODIPINE [Concomitant]
  9. LISINOPRIL [Concomitant]
  10. LEXAPRO (ESCITALOPRAM OXALATE) (ESCITALOPRAM OXALATE) [Concomitant]
  11. PREDNISONE [Concomitant]

REACTIONS (3)
  - NAUSEA [None]
  - DIARRHOEA [None]
  - VOMITING [None]
